FAERS Safety Report 25672599 (Version 2)
Quarter: 2025Q3

REPORT INFORMATION
  Report Type: Spontaneous
  Country: US (occurrence: US)
  Receive Date: 20250812
  Receipt Date: 20250816
  Transmission Date: 20251021
  Serious: No
  Sender: SANOFI AVENTIS
  Company Number: US-SA-2025SA236295

PATIENT
  Age: 57 Year
  Sex: Female

DRUGS (8)
  1. DUPIXENT [Suspect]
     Active Substance: DUPILUMAB
     Indication: Idiopathic urticaria
     Route: 058
     Dates: start: 202507, end: 202507
  2. DUPIXENT [Suspect]
     Active Substance: DUPILUMAB
     Dosage: 300 MG, QOW
     Route: 058
     Dates: start: 2025
  3. MONTELUKAST [Concomitant]
     Active Substance: MONTELUKAST
     Indication: Urticaria
  4. MONTELUKAST [Concomitant]
     Active Substance: MONTELUKAST
     Indication: Eczema
  5. CETIRIZINE [Concomitant]
     Active Substance: CETIRIZINE HYDROCHLORIDE
     Indication: Urticaria
  6. CETIRIZINE [Concomitant]
     Active Substance: CETIRIZINE HYDROCHLORIDE
     Indication: Eczema
  7. CLOBETASOL [Concomitant]
     Active Substance: CLOBETASOL
     Indication: Urticaria
  8. CLOBETASOL [Concomitant]
     Active Substance: CLOBETASOL
     Indication: Eczema

REACTIONS (4)
  - Rash erythematous [Unknown]
  - Pruritus [Unknown]
  - Skin burning sensation [Unknown]
  - Product use in unapproved indication [Unknown]

NARRATIVE: CASE EVENT DATE: 20250701
